FAERS Safety Report 24327871 (Version 1)
Quarter: 2024Q3

REPORT INFORMATION
  Report Type: Spontaneous
  Country: US (occurrence: None)
  Receive Date: 20240916
  Receipt Date: 20240916
  Transmission Date: 20241017
  Serious: No
  Sender: Public
  Company Number: None

PATIENT
  Age: 14 Year
  Sex: Male
  Weight: 72 kg

DRUGS (5)
  1. GAMMAGARD [Suspect]
     Active Substance: HUMAN IMMUNOGLOBULIN G
     Indication: Paediatric acute-onset neuropsychiatric syndrome
     Dosage: 20 G GRAM(S) 60GM X 2 DAYS EVER INTRAVENOUS DRIP
     Route: 041
     Dates: start: 20240907, end: 20240908
  2. MIRTAZAPINE [Suspect]
     Active Substance: MIRTAZAPINE
     Dates: start: 20240905
  3. ONDANSETRON [Suspect]
     Active Substance: ONDANSETRON
     Dates: start: 20231016
  4. DIPHENHYDRAMINE [Suspect]
     Active Substance: DIPHENHYDRAMINE
     Dates: start: 20231016
  5. PREDNISONE [Concomitant]
     Active Substance: PREDNISONE
     Dates: start: 20231016

REACTIONS (5)
  - Dyspnoea [None]
  - Throat tightness [None]
  - Drug interaction [None]
  - Hypersensitivity [None]
  - Therapy interrupted [None]

NARRATIVE: CASE EVENT DATE: 20240907
